FAERS Safety Report 5064801-1 (Version None)
Quarter: 2006Q3

REPORT INFORMATION
  Report Type: 
  Country: None (occurrence: None)
  Receive Date: 20060728
  Receipt Date: 20060606
  Transmission Date: 20061208
  Serious: Yes (Death, Other)
  Sender: FDA-Public Use
  Company Number: PHEH2006US07383

PATIENT
  Age: 59 Year
  Sex: Male

DRUGS (14)
  1. ANTIBIOTICS [Concomitant]
     Indication: PROPHYLAXIS
     Dates: start: 20060527
  2. ALIMTA [Concomitant]
     Dates: start: 20051201
  3. KYTRIL [Concomitant]
     Indication: PREMEDICATION
     Dates: start: 20051201
  4. DEXAMETHASONE TAB [Concomitant]
     Indication: PREMEDICATION
     Dates: start: 20051201
  5. TAXOTERE [Concomitant]
     Dates: start: 20060401
  6. MORPHINE [Concomitant]
  7. COLACE [Concomitant]
  8. LASIX [Concomitant]
  9. SUTENT [Concomitant]
  10. TAMSULOSIN HYDROCHLORIDE [Concomitant]
     Indication: BENIGN PROSTATIC HYPERPLASIA
  11. ATACAND [Concomitant]
     Indication: HYPERTENSION
  12. ZOMETA [Suspect]
     Indication: METASTASES TO BONE
     Dosage: 4 MG, UNK
     Dates: start: 20051201, end: 20060301
  13. ZOMETA [Suspect]
     Dosage: 4 MG, UNK
     Dates: start: 20060101, end: 20060101
  14. ZOMETA [Suspect]
     Dosage: 4 MG, UNK
     Dates: start: 20060301, end: 20060301

REACTIONS (9)
  - ALVEOLOPLASTY [None]
  - BONE DISORDER [None]
  - GINGIVITIS [None]
  - MALIGNANT NEOPLASM PROGRESSION [None]
  - METASTASIS [None]
  - ORAL PAIN [None]
  - OSTEONECROSIS [None]
  - REFUSAL OF TREATMENT BY PATIENT [None]
  - SWELLING [None]
